FAERS Safety Report 17524531 (Version 1)
Quarter: 2020Q1

REPORT INFORMATION
  Report Type: Spontaneous
  Country: FR (occurrence: FR)
  Receive Date: 20200310
  Receipt Date: 20200310
  Transmission Date: 20200409
  Serious: Yes (Death, Other)
  Sender: FDA-Public Use
  Company Number: FR-JNJFOC-20200302452

PATIENT
  Age: 31 Year
  Sex: Female
  Weight: 55 kg

DRUGS (11)
  1. SUXAMETHONIUM                      /00057702/ [Suspect]
     Active Substance: SUCCINYLCHOLINE
     Indication: INDUCTION OF ANAESTHESIA
     Route: 042
     Dates: start: 20200117, end: 20200117
  2. PROPOFOL LIPURO [Suspect]
     Active Substance: PROPOFOL
     Indication: INDUCTION OF ANAESTHESIA
     Route: 042
     Dates: start: 20200117, end: 20200117
  3. SPASFON                            /00765801/ [Suspect]
     Active Substance: PHLOROGLUCINOL\1,3,5-TRIMETHOXYBENZENE
     Indication: ANALGESIC THERAPY
     Route: 042
     Dates: start: 20200117, end: 20200118
  4. EPHEDRINE HYDROCHLORIDE [Suspect]
     Active Substance: EPHEDRINE HYDROCHLORIDE
     Indication: HYPOTENSION
     Route: 042
     Dates: start: 20200117, end: 20200117
  5. OXYTOCINE [Suspect]
     Active Substance: OXYTOCIN
     Indication: UTERINE ATONY
     Route: 042
     Dates: start: 20200117, end: 20200117
  6. TRAMADOL HYDROCHLORIDE. [Suspect]
     Active Substance: TRAMADOL HYDROCHLORIDE
     Indication: ANALGESIC THERAPY
     Route: 042
     Dates: start: 20200117, end: 20200117
  7. NEFOPAM MYLAN [Suspect]
     Active Substance: NEFOPAM
     Indication: ANALGESIC THERAPY
     Route: 042
     Dates: start: 20200117, end: 20200117
  8. DEXAMETHASONE. [Suspect]
     Active Substance: DEXAMETHASONE
     Indication: ANTIEMETIC SUPPORTIVE CARE
     Route: 042
     Dates: start: 20200117, end: 20200117
  9. PARACETAMOL B BRAUN [Suspect]
     Active Substance: ACETAMINOPHEN
     Indication: ANALGESIC THERAPY
     Route: 042
     Dates: start: 20200117, end: 20200118
  10. RAPIFEN                            /00676302/ [Suspect]
     Active Substance: ALFENTANIL HYDROCHLORIDE
     Indication: INDUCTION OF ANAESTHESIA
     Route: 042
     Dates: start: 20200117, end: 20200117
  11. PROFENID [Suspect]
     Active Substance: KETOPROFEN
     Indication: ANALGESIC THERAPY
     Route: 042
     Dates: start: 20200117, end: 20200118

REACTIONS (5)
  - Infection [Fatal]
  - Cerebral haemorrhage [Fatal]
  - Septic shock [Fatal]
  - Disseminated intravascular coagulation [Fatal]
  - Beta haemolytic streptococcal infection [Fatal]

NARRATIVE: CASE EVENT DATE: 20200119
